FAERS Safety Report 22625834 (Version 1)
Quarter: 2023Q2

REPORT INFORMATION
  Report Type: Spontaneous
  Country: US (occurrence: US)
  Receive Date: 20230621
  Receipt Date: 20230621
  Transmission Date: 20230722
  Serious: No
  Sender: FDA-Public Use
  Company Number: US-BAUSCH-BL-2023-009191

PATIENT
  Age: 68 Year
  Sex: Female
  Weight: 54.48 kg

DRUGS (10)
  1. XIFAXAN [Suspect]
     Active Substance: RIFAXIMIN
     Indication: Gastrointestinal bacterial overgrowth
     Route: 048
     Dates: start: 20230613
  2. XIFAXAN [Suspect]
     Active Substance: RIFAXIMIN
     Indication: Product use in unapproved indication
  3. IMITREX [Concomitant]
     Active Substance: SUMATRIPTAN SUCCINATE
     Indication: Product used for unknown indication
     Dosage: IMITREX
  4. IMITREX [Concomitant]
     Active Substance: SUMATRIPTAN SUCCINATE
     Dosage: ASPIRIN
  5. IMITREX [Concomitant]
     Active Substance: SUMATRIPTAN SUCCINATE
     Dosage: IMITREX
  6. IMITREX [Concomitant]
     Active Substance: SUMATRIPTAN SUCCINATE
     Dosage: IMITREX
  7. PREVACID [Concomitant]
     Active Substance: LANSOPRAZOLE
     Indication: Product used for unknown indication
  8. PREVACID [Concomitant]
     Active Substance: LANSOPRAZOLE
     Dosage: ASPIRIN
  9. PREVACID [Concomitant]
     Active Substance: LANSOPRAZOLE
     Dosage: IMITREX
  10. ASPIRIN [Concomitant]
     Active Substance: ASPIRIN
     Indication: Product used for unknown indication
     Dosage: ASPIRIN

REACTIONS (5)
  - Bronchitis [Unknown]
  - Erythema [Unknown]
  - Malaise [Unknown]
  - Dyspnoea [Unknown]
  - Product use in unapproved indication [Unknown]

NARRATIVE: CASE EVENT DATE: 20230601
